FAERS Safety Report 8393811 (Version 2)
Quarter: 2013Q1

REPORT INFORMATION
  Report Type: Report from Study
  Country: US (occurrence: US)
  Receive Date: 20120207
  Receipt Date: 20130109
  Transmission Date: 20140127
  Serious: Yes (Hospitalization)
  Sender: FDA-Public Use
  Company Number: PHHO2011US02728

PATIENT
  Age: 89 Year
  Sex: Female
  Weight: 52.3 kg

DRUGS (2)
  1. EXELON [Suspect]
     Indication: DEMENTIA ALZHEIMER^S TYPE
     Dosage: 1 DF, (15 CM^2)
     Route: 062
     Dates: start: 20110111, end: 20110208
  2. VERAPAMIL [Suspect]

REACTIONS (4)
  - Syncope [Recovered/Resolved]
  - Dehydration [Recovered/Resolved]
  - Hypovolaemia [Recovered/Resolved]
  - Anaemia [Recovered/Resolved]
